FAERS Safety Report 9551925 (Version 3)
Quarter: 2013Q4

REPORT INFORMATION
  Report Type: Report from Study
  Country: BR (occurrence: BR)
  Receive Date: 20130925
  Receipt Date: 20131016
  Transmission Date: 20140711
  Serious: Yes (Hospitalization)
  Sender: FDA-Public Use
  Company Number: BR-JNJFOC-20121015829

PATIENT
  Age: 4 Year
  Sex: Female
  Weight: 16.8 kg

DRUGS (14)
  1. GOLIMUMAB [Suspect]
     Indication: JUVENILE IDIOPATHIC ARTHRITIS
     Route: 058
     Dates: start: 20130115
  2. GOLIMUMAB [Suspect]
     Indication: JUVENILE IDIOPATHIC ARTHRITIS
     Route: 058
     Dates: start: 20121016
  3. GOLIMUMAB [Suspect]
     Indication: JUVENILE IDIOPATHIC ARTHRITIS
     Route: 058
     Dates: start: 20120626
  4. GOLIMUMAB [Suspect]
     Indication: JUVENILE IDIOPATHIC ARTHRITIS
     Route: 058
     Dates: start: 20120821
  5. GOLIMUMAB [Suspect]
     Indication: JUVENILE IDIOPATHIC ARTHRITIS
     Route: 058
     Dates: start: 20120917
  6. GOLIMUMAB [Suspect]
     Indication: JUVENILE IDIOPATHIC ARTHRITIS
     Route: 058
     Dates: start: 20120724
  7. PREDNISOLONE [Concomitant]
     Indication: ARTHRITIS
     Route: 048
     Dates: start: 20120514
  8. NAPROXEN [Concomitant]
     Indication: ARTHRITIS
     Route: 048
     Dates: start: 20120209
  9. FOLIC ACID [Concomitant]
     Indication: ARTHRITIS
     Route: 048
     Dates: start: 20120210
  10. HYDROXYZINE [Concomitant]
     Indication: RHINITIS
     Route: 048
     Dates: start: 20120821
  11. BUDESONIDE [Concomitant]
     Indication: RHINITIS
     Route: 045
     Dates: start: 20120821
  12. BEROTEC [Concomitant]
     Indication: UPPER RESPIRATORY TRACT INFECTION
     Route: 055
     Dates: start: 20121001, end: 20121016
  13. BAMBUTEROL [Concomitant]
     Indication: UPPER RESPIRATORY TRACT INFECTION
     Route: 048
     Dates: start: 20121016, end: 20121016
  14. DIPYRONE [Concomitant]
     Indication: UPPER RESPIRATORY TRACT INFECTION
     Route: 048
     Dates: start: 20121021, end: 20121021

REACTIONS (1)
  - Pneumonia [Recovered/Resolved]
